FAERS Safety Report 19507132 (Version 1)
Quarter: 2021Q3

REPORT INFORMATION
  Report Type: Spontaneous
  Country: NL (occurrence: NL)
  Receive Date: 20210708
  Receipt Date: 20210708
  Transmission Date: 20211014
  Serious: Yes (Other)
  Sender: FDA-Public Use
  Company Number: NL-PFIZER INC-2021760318

PATIENT
  Age: 78 Year
  Sex: Female

DRUGS (12)
  1. COMIRNATY [Suspect]
     Active Substance: TOZINAMERAN
     Indication: COVID-19 IMMUNISATION
     Dosage: 2ND DOSE, SINGLE
     Dates: start: 20210511, end: 20210511
  2. HYDROCORTISONE SODIUM SUCCINATE [Suspect]
     Active Substance: HYDROCORTISONE SODIUM SUCCINATE
     Indication: CHOLANGITIS SCLEROSING
  3. LISINOPRIL. [Concomitant]
     Active Substance: LISINOPRIL
     Dates: start: 2016
  4. HYDROCORTISONE SODIUM SUCCINATE [Suspect]
     Active Substance: HYDROCORTISONE SODIUM SUCCINATE
     Indication: CROHN^S DISEASE
     Dosage: 200 HYDRO DRIP 6 WEEKS DAY ADMISSION
     Dates: start: 20210609
  5. FOLIC ACID. [Concomitant]
     Active Substance: FOLIC ACID
     Dates: start: 1983
  6. FAMOTIDINE. [Concomitant]
     Active Substance: FAMOTIDINE
     Dates: start: 1990
  7. URSOCHOL [Concomitant]
     Active Substance: URSODIOL
     Dates: start: 1983
  8. REMICADE [Suspect]
     Active Substance: INFLIXIMAB
     Indication: CROHN^S DISEASE
     Dosage: 300 REMICADE INFUSION 6 WEEKS DAY ADMISSION
     Dates: start: 20210609
  9. PANCREATIS PULVIS [Concomitant]
     Dates: start: 2009
  10. ACENOCOUMAROL [Concomitant]
     Active Substance: ACENOCOUMAROL
     Dates: start: 1996
  11. REMICADE [Suspect]
     Active Substance: INFLIXIMAB
     Indication: CHOLANGITIS SCLEROSING
  12. VIMPAT [Concomitant]
     Active Substance: LACOSAMIDE
     Dates: start: 2016

REACTIONS (3)
  - Malaise [Unknown]
  - Blood sodium decreased [Unknown]
  - Diabetes mellitus inadequate control [Unknown]
